FAERS Safety Report 10601888 (Version 3)
Quarter: 2014Q4

REPORT INFORMATION
  Report Type: Spontaneous
  Country: US (occurrence: US)
  Receive Date: 20141124
  Receipt Date: 20141218
  Transmission Date: 20150529
  Serious: Yes (Other)
  Sender: FDA-Public Use
  Company Number: US-PFIZER INC-2014300141

PATIENT
  Age: 78 Year
  Sex: Female

DRUGS (1)
  1. XALKORI [Suspect]
     Active Substance: CRIZOTINIB
     Dosage: 250 MG, 2X/DAY
     Dates: start: 20140619, end: 20140819

REACTIONS (9)
  - Vomiting [Unknown]
  - Eye disorder [Recovered/Resolved]
  - Renal impairment [Recovered/Resolved]
  - Diarrhoea [Unknown]
  - Malaise [Recovered/Resolved]
  - Ageusia [Recovered/Resolved]
  - Asthenia [Recovered/Resolved]
  - Nausea [Unknown]
  - Constipation [Unknown]

NARRATIVE: CASE EVENT DATE: 2014
